FAERS Safety Report 5416606-7 (Version None)
Quarter: 2007Q3

REPORT INFORMATION
  Report Type: 
  Country: None (occurrence: None)
  Receive Date: 20070815
  Receipt Date: 20070815
  Transmission Date: 20080115
  Serious: Yes (Hospitalization)
  Sender: FDA-Public Use
  Company Number: None

PATIENT
  Age: 57 Year
  Sex: Female
  Weight: 54 kg

DRUGS (2)
  1. VAPRISOL [Suspect]
     Indication: HYPONATRAEMIA
     Dosage: 20 MG BOLUS X1 IV DRIP; 20MG IN 250 ML CONTINUOUS IV DRIP
     Route: 041
     Dates: start: 20070616, end: 20070617
  2. VAPRISOL [Suspect]
     Indication: INAPPROPRIATE ANTIDIURETIC HORMONE SECRETION
     Dosage: 20 MG BOLUS X1 IV DRIP; 20MG IN 250 ML CONTINUOUS IV DRIP
     Route: 041
     Dates: start: 20070616, end: 20070617

REACTIONS (2)
  - BLOOD PRESSURE DECREASED [None]
  - URINE OUTPUT INCREASED [None]
